FAERS Safety Report 5927393-8 (Version None)
Quarter: 2008Q4

REPORT INFORMATION
  Report Type: 
  Country: None (occurrence: None)
  Receive Date: 20081021
  Receipt Date: 20081021
  Transmission Date: 20090506
  Serious: Yes (Other)
  Sender: FDA-Public Use
  Company Number: None

PATIENT
  Sex: Female
  Weight: 97.977 kg

DRUGS (2)
  1. PAROXETINE HCL [Suspect]
     Indication: ANXIETY
     Dosage: 37.5MG ONE QD ORAL  4-5 YRS.
     Route: 048
     Dates: end: 20060101
  2. PAROXETINE HCL [Suspect]
     Indication: DEPRESSION
     Dosage: 37.5MG ONE QD ORAL  4-5 YRS.
     Route: 048
     Dates: end: 20060101

REACTIONS (2)
  - INSOMNIA [None]
  - PRODUCT QUALITY ISSUE [None]
